FAERS Safety Report 7384060-4 (Version None)
Quarter: 2011Q1

REPORT INFORMATION
  Report Type: 
  Country: None (occurrence: None)
  Receive Date: 20110330
  Receipt Date: 20110318
  Transmission Date: 20110831
  Serious: Yes (Hospitalization)
  Sender: FDA-Public Use
  Company Number: A0728843A

PATIENT
  Age: 41 Year
  Sex: Female
  Weight: 84.5 kg

DRUGS (3)
  1. REZULIN [Concomitant]
     Dates: start: 19950101, end: 20000101
  2. AVANDIA [Suspect]
     Dosage: 8MG PER DAY
     Route: 048
     Dates: start: 19991228, end: 20060531
  3. METFORMIN [Concomitant]
     Dates: start: 19980101

REACTIONS (2)
  - MYOCARDIAL INFARCTION [None]
  - HEART INJURY [None]
